FAERS Safety Report 6586434-8 (Version None)
Quarter: 2010Q1

REPORT INFORMATION
  Report Type: 
  Country: None (occurrence: None)
  Receive Date: 20100217
  Receipt Date: 20090409
  Transmission Date: 20100710
  Serious: No
  Sender: FDA-Public Use
  Company Number: US-ALLERGAN-0902954US

PATIENT
  Age: 54 Year
  Sex: Female

DRUGS (3)
  1. BOTOX COSMETIC [Suspect]
     Indication: DRUG USE FOR UNKNOWN INDICATION
     Dosage: 30 UNITS, SINGLE
     Route: 030
     Dates: start: 20081205, end: 20081205
  2. BOTOX COSMETIC [Suspect]
     Dosage: UNK, UNK
     Dates: start: 20080701, end: 20080701
  3. JUVEDERM ULTRA PLUS [Concomitant]
     Indication: SKIN WRINKLING
     Dosage: 0.8 ML, UNK

REACTIONS (3)
  - EYELID PTOSIS [None]
  - VISUAL ACUITY REDUCED [None]
  - WRONG TECHNIQUE IN DRUG USAGE PROCESS [None]
